FAERS Safety Report 13354254 (Version 1)
Quarter: 2017Q1

REPORT INFORMATION
  Report Type: Spontaneous
  Country: US (occurrence: US)
  Receive Date: 20170321
  Receipt Date: 20170321
  Transmission Date: 20170429
  Serious: Yes (Life-Threatening)
  Sender: FDA-Public Use
  Company Number: US-AUROBINDO-AUR-APL-2017-30981

PATIENT
  Age: 37 Year
  Sex: Female

DRUGS (2)
  1. PREDNISONE 10 MG [Suspect]
     Active Substance: PREDNISONE
     Indication: SARCOIDOSIS
     Dosage: 60 MG DAILY FOR SEVERAL MONTHS AND EVENTUALLY TAPERED TO 10 MG DAILY
     Route: 065
  2. METHOTREXATE. [Suspect]
     Active Substance: METHOTREXATE
     Indication: SARCOIDOSIS
     Dosage: UNK
     Route: 065

REACTIONS (1)
  - Treatment failure [Not Recovered/Not Resolved]
